FAERS Safety Report 20820459 (Version 4)
Quarter: 2023Q1

REPORT INFORMATION
  Report Type: Spontaneous
  Country: US (occurrence: US)
  Receive Date: 20220512
  Receipt Date: 20230309
  Transmission Date: 20230418
  Serious: No
  Sender: FDA-Public Use
  Company Number: US-PFIZER INC-202200412454

PATIENT
  Age: 60 Year
  Sex: Female

DRUGS (2)
  1. XELJANZ [Suspect]
     Active Substance: TOFACITINIB CITRATE
     Dosage: 5 MG
  2. HUMIRA [Concomitant]
     Active Substance: ADALIMUMAB
     Indication: Crohn^s disease
     Dosage: UNK, (STOPPED)

REACTIONS (5)
  - Headache [Not Recovered/Not Resolved]
  - COVID-19 [Unknown]
  - Therapeutic response unexpected [Unknown]
  - Arthropathy [Unknown]
  - Weight increased [Unknown]
